FAERS Safety Report 9570972 (Version 1)
Quarter: 2013Q4

REPORT INFORMATION
  Report Type: Spontaneous
  Country: US (occurrence: US)
  Receive Date: 20131001
  Receipt Date: 20131001
  Transmission Date: 20140711
  Serious: Yes (Hospitalization)
  Sender: FDA-Public Use
  Company Number: US-TEVA-434652USA

PATIENT
  Age: 43 Year
  Sex: Male

DRUGS (1)
  1. PROAIR HFA [Suspect]

REACTIONS (4)
  - Asthma [Recovered/Resolved]
  - Bronchitis [Recovered/Resolved]
  - Cough [Unknown]
  - Drug ineffective [Unknown]
